FAERS Safety Report 9501528 (Version 1)
Quarter: 2013Q3

REPORT INFORMATION
  Report Type: Spontaneous
  Country: US (occurrence: US)
  Receive Date: 20130905
  Receipt Date: 20130905
  Transmission Date: 20140515
  Serious: Yes (Other)
  Sender: FDA-Public Use
  Company Number: US-BRISTOL-MYERS SQUIBB COMPANY-19237205

PATIENT
  Age: 76 Year
  Sex: Female
  Weight: 92.51 kg

DRUGS (2)
  1. SPRYCEL [Suspect]
     Indication: CHRONIC MYELOID LEUKAEMIA
     Dates: start: 20130817
  2. ADVAIR [Concomitant]

REACTIONS (4)
  - Pulmonary mass [Unknown]
  - Platelet count decreased [Unknown]
  - Dyspnoea [Unknown]
  - Cough [Unknown]
